FAERS Safety Report 9983794 (Version 1)
Quarter: 2014Q1

REPORT INFORMATION
  Report Type: Report from Study
  Country: IR (occurrence: IR)
  Receive Date: 20140307
  Receipt Date: 20140307
  Transmission Date: 20141002
  Serious: Yes (Other)
  Sender: FDA-Public Use
  Company Number: IR-BAXTER-2014BAX010517

PATIENT
  Sex: Female

DRUGS (1)
  1. KIOVIG (10 G/100 ML) [Suspect]
     Indication: PRODUCT USED FOR UNKNOWN INDICATION
     Route: 065

REACTIONS (1)
  - Hepatitis B surface antigen positive [Unknown]
